FAERS Safety Report 7032673-1 (Version None)
Quarter: 2010Q4

REPORT INFORMATION
  Report Type: 
  Country: None (occurrence: None)
  Receive Date: 20101007
  Receipt Date: 20090807
  Transmission Date: 20110411
  Serious: Yes (Death)
  Sender: FDA-Public Use
  Company Number: IN-SANOFI-AVENTIS-200816633GDDC

PATIENT
  Age: 56 Year
  Sex: Male
  Weight: 65.1 kg

DRUGS (7)
  1. PLACEBO [Suspect]
     Indication: NON-SMALL CELL LUNG CANCER
     Dosage: DOSE UNIT: 6 MG/KG
     Route: 042
     Dates: start: 20080623, end: 20080623
  2. DOCETAXEL [Suspect]
     Indication: NON-SMALL CELL LUNG CANCER
     Dosage: DOSE UNIT: 75 MG/M**2
     Route: 042
     Dates: start: 20080623, end: 20080623
  3. PAN-D [Concomitant]
  4. PRACTIN [Concomitant]
  5. EMESET [Concomitant]
  6. REGLAN /YUG/ [Concomitant]
  7. BENADRYL [Concomitant]

REACTIONS (1)
  - DISEASE PROGRESSION [None]
